FAERS Safety Report 8415411-7 (Version None)
Quarter: 2012Q2

REPORT INFORMATION
  Report Type: 
  Country: None (occurrence: None)
  Receive Date: 20120606
  Receipt Date: 20120531
  Transmission Date: 20120825
  Serious: No
  Sender: FDA-Public Use
  Company Number: PHEH2012US009761

PATIENT
  Sex: Female

DRUGS (7)
  1. TASIGNA [Suspect]
     Indication: CHRONIC MYELOID LEUKAEMIA
     Dosage: 300 MG, BID
     Route: 048
     Dates: start: 20120418
  2. TASIGNA [Suspect]
     Dosage: 150 MG, QD
     Route: 048
     Dates: end: 20120529
  3. ASPIRIN [Concomitant]
     Dosage: 81 MG, DAILY
  4. ALLOPURINOL [Suspect]
     Dosage: 300 MG, DAILY
     Dates: start: 20120416
  5. DIOVAN [Concomitant]
     Dosage: 160 MG, DAILY
  6. SIMVASTATIN [Concomitant]
     Dosage: 20 MG, DAILY
  7. FISH OIL [Concomitant]
     Dosage: 1000 MG, DAILY

REACTIONS (4)
  - NAUSEA [None]
  - VOMITING [None]
  - CONSTIPATION [None]
  - RASH [None]
